FAERS Safety Report 22357202 (Version 2)
Quarter: 2023Q2

REPORT INFORMATION
  Report Type: Report from Study
  Country: US (occurrence: US)
  Receive Date: 20230524
  Receipt Date: 20230525
  Transmission Date: 20230722
  Serious: Yes (Other)
  Sender: FDA-Public Use
  Company Number: US-ABBVIE-4773170

PATIENT
  Age: 71 Year
  Sex: Female

DRUGS (2)
  1. HUMIRA [Suspect]
     Active Substance: ADALIMUMAB
     Indication: Product used for unknown indication
     Route: 058
  2. RINVOQ [Suspect]
     Active Substance: UPADACITINIB
     Indication: Rheumatoid arthritis
     Route: 048
     Dates: start: 20221218

REACTIONS (12)
  - Vaginal cancer [Unknown]
  - Hepatitis C [Unknown]
  - Food poisoning [Unknown]
  - Groin pain [Unknown]
  - Tremor [Not Recovered/Not Resolved]
  - Blood pressure increased [Unknown]
  - Pruritus [Unknown]
  - Rash [Recovered/Resolved]
  - Joint dislocation [Unknown]
  - Dyskinesia [Unknown]
  - Spinal fracture [Unknown]
  - Grip strength decreased [Unknown]

NARRATIVE: CASE EVENT DATE: 20230119
